FAERS Safety Report 5346392-0 (Version None)
Quarter: 2007Q2

REPORT INFORMATION
  Report Type: 
  Country: None (occurrence: None)
  Receive Date: 20070605
  Receipt Date: 20070524
  Transmission Date: 20071010
  Serious: Yes (Disabling)
  Sender: FDA-Public Use
  Company Number: US-ELI_LILLY_AND_COMPANY-US200705006221

PATIENT
  Age: 62 Year
  Sex: Female

DRUGS (1)
  1. EVISTA [Suspect]
     Indication: SUPPLEMENTATION THERAPY
     Dosage: 60 MG, UNK
     Route: 048
     Dates: end: 20070301

REACTIONS (6)
  - ABASIA [None]
  - IMPAIRED DRIVING ABILITY [None]
  - JOINT STIFFNESS [None]
  - JOINT SWELLING [None]
  - MUSCULOSKELETAL STIFFNESS [None]
  - PARAESTHESIA [None]
